FAERS Safety Report 22162285 (Version 1)
Quarter: 2023Q1

REPORT INFORMATION
  Report Type: Spontaneous
  Country: IN (occurrence: IN)
  Receive Date: 20230331
  Receipt Date: 20230331
  Transmission Date: 20230417
  Serious: Yes (Life-Threatening, Hospitalization)
  Sender: FDA-Public Use
  Company Number: IN-drreddys-LIT/IND/23/0163038

PATIENT
  Age: 40 Year
  Sex: Male
  Weight: 68 kg

DRUGS (5)
  1. REMDESIVIR [Suspect]
     Active Substance: REMDESIVIR
     Indication: COVID-19 pneumonia
  2. DEXAMETHASONE [Suspect]
     Active Substance: DEXAMETHASONE
     Indication: COVID-19 pneumonia
  3. MEROPENEM [Suspect]
     Active Substance: MEROPENEM
     Indication: COVID-19 pneumonia
  4. DOXYCYCLINE [Suspect]
     Active Substance: DOXYCYCLINE
     Indication: COVID-19 pneumonia
  5. UNSPECIFIED INGREDIENT [Suspect]
     Active Substance: UNSPECIFIED INGREDIENT
     Indication: COVID-19 pneumonia
     Route: 058

REACTIONS (3)
  - Respiratory distress [Recovering/Resolving]
  - COVID-19 pneumonia [Recovering/Resolving]
  - Product use in unapproved indication [Unknown]
